FAERS Safety Report 19823823 (Version 1)
Quarter: 2021Q3

REPORT INFORMATION
  Report Type: Report from Study
  Country: FR (occurrence: FR)
  Receive Date: 20210913
  Receipt Date: 20210913
  Transmission Date: 20211014
  Serious: Yes (Other)
  Sender: FDA-Public Use
  Company Number: FR-AMGEN-FRANI2021102859

PATIENT
  Age: 49 Year
  Sex: Female

DRUGS (2)
  1. ERENUMAB [Suspect]
     Active Substance: ERENUMAB
     Indication: MIGRAINE
     Dosage: 70 MILLIGRAM
     Route: 058
     Dates: start: 20200729
  2. AERIUS (DESLORATADINE) [Concomitant]
     Active Substance: DESLORATADINE
     Indication: PRODUCT USED FOR UNKNOWN INDICATION
     Dosage: UNK
     Route: 065

REACTIONS (8)
  - Anaphylactic reaction [Unknown]
  - Pruritus [Unknown]
  - Skin burning sensation [Recovered/Resolved]
  - Pyrexia [Unknown]
  - Flushing [Unknown]
  - Rash macular [Unknown]
  - Erythema [Unknown]
  - Pruritus [Recovered/Resolved]

NARRATIVE: CASE EVENT DATE: 20200729
